FAERS Safety Report 6787256-5 (Version None)
Quarter: 2010Q2

REPORT INFORMATION
  Report Type: 
  Country: None (occurrence: None)
  Receive Date: 20100621
  Receipt Date: 20100608
  Transmission Date: 20101027
  Serious: Yes (Other)
  Sender: FDA-Public Use
  Company Number: 2010-0524

PATIENT
  Age: 53 Year
  Sex: Female
  Weight: 48 kg

DRUGS (1)
  1. AZZALURE (BOTULINUM TOXIN TYPE A) (BOTULINUM TOXIN TYPE A) [Suspect]
     Indication: SKIN WRINKLING
     Dosage: 50 UNITS (50 UNITS, SINGLE CYCLE), INTRAMUSCULAR
     Route: 030
     Dates: start: 20100203, end: 20100203

REACTIONS (7)
  - HYPOAESTHESIA [None]
  - NAUSEA [None]
  - PARAESTHESIA ORAL [None]
  - RHINALGIA [None]
  - RHINORRHOEA [None]
  - SENSATION OF HEAVINESS [None]
  - VOMITING [None]
